FAERS Safety Report 12591191 (Version 1)
Quarter: 2016Q3

REPORT INFORMATION
  Report Type: Spontaneous
  Country: US (occurrence: None)
  Receive Date: 20160725
  Receipt Date: 20160725
  Transmission Date: 20161109
  Serious: No
  Sender: FDA-Public Use
  Company Number: None

PATIENT
  Age: 35 Year
  Sex: Male
  Weight: 81.65 kg

DRUGS (5)
  1. ALBUTEROL. [Concomitant]
     Active Substance: ALBUTEROL
  2. CETAPHIL [Concomitant]
     Active Substance: AVOBENZONE\OCTOCRYLENE\TRICLOSAN
  3. MIRVASO [Suspect]
     Active Substance: BRIMONIDINE TARTRATE
     Indication: ROSACEA
     Dosage: 4 DROP(S) IN THE MORNING APPLIED AS MEDICATED PATCH TO SKIN
     Route: 061
     Dates: start: 20160721, end: 20160723
  4. AVENVO FACE WASH [Concomitant]
  5. XANEX [Concomitant]

REACTIONS (2)
  - Erythema [None]
  - Burning sensation [None]

NARRATIVE: CASE EVENT DATE: 20160721
